FAERS Safety Report 6302695-4 (Version None)
Quarter: 2009Q3

REPORT INFORMATION
  Report Type: 
  Country: None (occurrence: None)
  Receive Date: 20090810
  Receipt Date: 20090730
  Transmission Date: 20100115
  Serious: Yes (Hospitalization)
  Sender: FDA-Public Use
  Company Number: IT-BAYER-200926896GPV

PATIENT
  Age: 76 Year
  Sex: Female

DRUGS (6)
  1. ADALAT [Suspect]
     Indication: DRUG USE FOR UNKNOWN INDICATION
     Route: 048
     Dates: start: 20050101
  2. OMEPRAZOLE [Suspect]
     Indication: DRUG USE FOR UNKNOWN INDICATION
     Route: 048
     Dates: start: 20050101
  3. TORADOL [Suspect]
     Indication: DRUG USE FOR UNKNOWN INDICATION
     Dosage: UNIT DOSE: 10 MG
     Route: 048
     Dates: start: 20090623, end: 20090723
  4. SOTALOL HCL [Concomitant]
     Route: 048
  5. ASPIRIN [Concomitant]
     Route: 048
  6. SELEPARINA [Concomitant]
     Route: 065

REACTIONS (7)
  - ABDOMINAL PAIN UPPER [None]
  - FATIGUE [None]
  - HYPERHIDROSIS [None]
  - LOSS OF CONSCIOUSNESS [None]
  - NAUSEA [None]
  - PANCREATITIS ACUTE [None]
  - VISION BLURRED [None]
